FAERS Safety Report 5555470-2 (Version None)
Quarter: 2007Q4

REPORT INFORMATION
  Report Type: 
  Country: None (occurrence: None)
  Receive Date: 20071213
  Receipt Date: 20070820
  Transmission Date: 20080405
  Serious: No
  Sender: FDA-Public Use
  Company Number: US-AMGEN-KDL239636

PATIENT
  Sex: Male

DRUGS (1)
  1. ENBREL [Suspect]
     Indication: PSORIATIC ARTHROPATHY
     Route: 058
     Dates: start: 20061010

REACTIONS (5)
  - GINGIVAL DISORDER [None]
  - MUCOSAL INFLAMMATION [None]
  - PARANASAL SINUS HYPERSECRETION [None]
  - SEASONAL ALLERGY [None]
  - SINUS CONGESTION [None]
